FAERS Safety Report 22376741 (Version 1)
Quarter: 2023Q2

REPORT INFORMATION
  Report Type: Spontaneous
  Country: US (occurrence: US)
  Receive Date: 20230528
  Receipt Date: 20230528
  Transmission Date: 20230721
  Serious: No
  Sender: FDA-Public Use
  Company Number: US-AMGEN-USASP2023091253

PATIENT
  Age: 27 Year
  Sex: Male

DRUGS (2)
  1. TAVNEOS [Suspect]
     Active Substance: AVACOPAN
     Indication: Arteritis
     Dosage: 30 MILLIGRAM, BID (TAKE 3 CAPSULES (30 MG) BY MOUTH TWICE DAILY WITH FOOD FOR VASCULITIS)
     Route: 048
     Dates: start: 20230119
  2. TAVNEOS [Suspect]
     Active Substance: AVACOPAN
     Indication: Vasculitis

REACTIONS (1)
  - Dyspepsia [Unknown]

NARRATIVE: CASE EVENT DATE: 20230101
